FAERS Safety Report 4389011-2 (Version None)
Quarter: 2004Q2

REPORT INFORMATION
  Report Type: 
  Country: None (occurrence: None)
  Receive Date: 20040624
  Receipt Date: 20040618
  Transmission Date: 20050107
  Serious: Yes (Life-Threatening, Other)
  Sender: FDA-Public Use
  Company Number: HQWYE542822JUN04

PATIENT
  Age: 57 Year
  Sex: Male
  Weight: 136.65 kg

DRUGS (22)
  1. RAPAMUNE [Suspect]
     Indication: PROPHYLAXIS AGAINST TRANSPLANT REJECTION
     Dosage: DOSE VARIES (CONCENTRATION
     Dates: start: 20040324, end: 20040422
  2. ALLOPURINOL [Concomitant]
  3. CALCITROL (CALCIUM CARBONATE/ERGOCALCIFEROL/RETINOL) [Concomitant]
  4. NPH INSULIN [Concomitant]
  5. PREVACID [Concomitant]
  6. MULTIVITAMINS (ASCORBIC ACID/ERGOCALCIFEROL/FOLIC ACID/NICOTINAMIDE/PA [Concomitant]
  7. ASPIRIN [Concomitant]
  8. IRON BILE SALTS [Concomitant]
  9. ZAROXOLYN [Concomitant]
  10. ANDROGEL [Concomitant]
  11. ATIVAN [Concomitant]
  12. ARANESP [Concomitant]
  13. TUMS (CALCIUM CARBONATE/MAGNESIUM CARBONATE/MAGNESIUM TRISILICATE) [Concomitant]
  14. KAYEXALATE [Concomitant]
  15. RENAGEL (SEVELAMER) [Concomitant]
  16. CYCLOSPORINE [Concomitant]
  17. TIAZAC [Concomitant]
  18. DIOVAN [Concomitant]
  19. TOPROL-XL [Concomitant]
  20. NORVASC [Concomitant]
  21. LOPID [Concomitant]
  22. PRANDIN [Concomitant]

REACTIONS (2)
  - CONCOMITANT DISEASE PROGRESSION [None]
  - RENAL FAILURE [None]
